FAERS Safety Report 14372694 (Version 3)
Quarter: 2018Q1

REPORT INFORMATION
  Report Type: Spontaneous
  Country: JP (occurrence: JP)
  Receive Date: 20180110
  Receipt Date: 20180319
  Transmission Date: 20180509
  Serious: Yes (Other)
  Sender: FDA-Public Use
  Company Number: JP-PFIZER INC-2018005696

PATIENT
  Age: 63 Year
  Sex: Male
  Weight: 62.2 kg

DRUGS (1)
  1. INLYTA [Suspect]
     Active Substance: AXITINIB
     Indication: RENAL CELL CARCINOMA
     Dosage: 5 MG, 2X/DAY
     Route: 048
     Dates: start: 20171219, end: 20171222

REACTIONS (5)
  - Cholecystitis [Recovered/Resolved]
  - Tumour lysis syndrome [Recovering/Resolving]
  - Renal impairment [Unknown]
  - Hepatic enzyme increased [Recovering/Resolving]
  - Renal haemorrhage [Recovered/Resolved]

NARRATIVE: CASE EVENT DATE: 20171222
